FAERS Safety Report 8110775-6 (Version None)
Quarter: 2012Q1

REPORT INFORMATION
  Report Type: 
  Country: None (occurrence: None)
  Receive Date: 20120201
  Receipt Date: 20120201
  Transmission Date: 20120608
  Serious: No
  Sender: FDA-Public Use
  Company Number: None

PATIENT
  Sex: Female
  Weight: 44.9 kg

DRUGS (2)
  1. TAXOL [Suspect]
     Dosage: 190 MG
     Dates: end: 20111220
  2. TOPOTECAN [Suspect]
     Dosage: 2.4 MG
     Dates: end: 20111222

REACTIONS (1)
  - NEUTROPHIL COUNT DECREASED [None]
